FAERS Safety Report 21230184 (Version 4)
Quarter: 2023Q1

REPORT INFORMATION
  Report Type: Spontaneous
  Country: US (occurrence: US)
  Receive Date: 20220818
  Receipt Date: 20230209
  Transmission Date: 20230417
  Serious: No
  Sender: FDA-Public Use
  Company Number: US-BIOGEN-2022BI01148484

PATIENT
  Sex: Female

DRUGS (1)
  1. TYSABRI [Suspect]
     Active Substance: NATALIZUMAB
     Indication: Multiple sclerosis
     Dosage: LAST INFUSION: 27-OCT-2022, INFUSION 11
     Route: 050
     Dates: start: 20211209

REACTIONS (19)
  - Drug ineffective [Not Recovered/Not Resolved]
  - Cognitive disorder [Not Recovered/Not Resolved]
  - Functional gastrointestinal disorder [Recovered/Resolved]
  - Lethargy [Recovered/Resolved]
  - Asthenia [Recovered/Resolved]
  - Anal incontinence [Recovered/Resolved]
  - Multiple sclerosis relapse [Unknown]
  - Lower respiratory tract congestion [Unknown]
  - Hiatus hernia [Unknown]
  - Migraine [Unknown]
  - Vitamin D decreased [Unknown]
  - Adnexa uteri pain [Unknown]
  - Cough [Unknown]
  - Wheezing [Unknown]
  - Multiple sclerosis [Unknown]
  - White blood cell count increased [Unknown]
  - Urinary tract infection [Unknown]
  - Vertigo [Recovered/Resolved]
  - Chest discomfort [Unknown]
